FAERS Safety Report 5278235-8 (Version None)
Quarter: 2007Q1

REPORT INFORMATION
  Report Type: 
  Country: None (occurrence: None)
  Receive Date: 20070328
  Receipt Date: 20070314
  Transmission Date: 20070707
  Serious: Yes (Hospitalization, Other)
  Sender: FDA-Public Use
  Company Number: US-ELI_LILLY_AND_COMPANY-US200701004694

PATIENT
  Age: 40 Year
  Sex: Male
  Weight: 81.632 kg

DRUGS (8)
  1. ZYPREXA [Suspect]
     Indication: SCHIZOPHRENIA
     Dosage: 15 MG, UNKNOWN
     Dates: start: 20020520, end: 20020620
  2. HALDOL [Concomitant]
     Dates: start: 20020520, end: 20020604
  3. REMERON [Concomitant]
     Dates: start: 20020520, end: 20020604
  4. ABILIFY [Concomitant]
     Dates: start: 20051109, end: 20051209
  5. SEROQUEL [Concomitant]
     Dates: start: 20050517, end: 20050617
  6. GEODON [Concomitant]
     Dates: start: 20050714, end: 20050814
  7. LITHIUM CARBONATE [Concomitant]
     Dates: start: 20050707, end: 20050807
  8. BUPROPION HCL [Concomitant]
     Dates: start: 20040112, end: 20040212

REACTIONS (8)
  - BLOOD CHOLESTEROL INCREASED [None]
  - BLOOD TRIGLYCERIDES INCREASED [None]
  - DIABETES MELLITUS [None]
  - HEPATITIS C [None]
  - HYPERGLYCAEMIA [None]
  - HYPERGLYCAEMIC HYPEROSMOLAR NONKETOTIC SYNDROME [None]
  - METABOLIC DISORDER [None]
  - PANCREATITIS [None]
